FAERS Safety Report 10403258 (Version 2)
Quarter: 2014Q3

REPORT INFORMATION
  Report Type: Spontaneous
  Country: JP (occurrence: JP)
  Receive Date: 20140822
  Receipt Date: 20140822
  Transmission Date: 20150326
  Serious: Yes (Hospitalization)
  Sender: FDA-Public Use
  Company Number: JP-PFIZER INC-2014223242

PATIENT
  Age: 2 Year

DRUGS (1)
  1. NORVASC [Suspect]
     Active Substance: AMLODIPINE BESYLATE
     Dosage: 1 DF, SINGLE
     Route: 048
     Dates: start: 20140809, end: 20140809

REACTIONS (2)
  - Blood pressure decreased [Recovered/Resolved]
  - Accidental exposure to product by child [Unknown]

NARRATIVE: CASE EVENT DATE: 20140809
